FAERS Safety Report 7655826-8 (Version None)
Quarter: 2011Q3

REPORT INFORMATION
  Report Type: 
  Country: None (occurrence: None)
  Receive Date: 20110804
  Receipt Date: 20110727
  Transmission Date: 20111222
  Serious: Yes (Hospitalization, Other)
  Sender: FDA-Public Use
  Company Number: JP-PFIZER INC-2011157727

PATIENT
  Age: 80 Year
  Sex: Male

DRUGS (1)
  1. SULFASALAZINE [Suspect]
     Dosage: UNK
     Dates: start: 20100501

REACTIONS (5)
  - JAUNDICE [None]
  - ALTERED STATE OF CONSCIOUSNESS [None]
  - DIZZINESS [None]
  - LIVER DISORDER [None]
  - HYPOGLYCAEMIA [None]
